FAERS Safety Report 10565266 (Version 1)
Quarter: 2014Q4

REPORT INFORMATION
  Report Type: Spontaneous
  Country: IN (occurrence: None)
  Receive Date: 20141103
  Receipt Date: 20141103
  Transmission Date: 20150529
  Serious: Yes (Death)
  Sender: FDA-Public Use
  Company Number: NSR_01652_2014

PATIENT
  Age: 56 Year
  Sex: Male

DRUGS (2)
  1. ALLOPURINOL (ALLOPURINOL) [Suspect]
     Active Substance: ALLOPURINOL
     Indication: GOUT
  2. BEVACIZUMAB (BEVACIZUMAB) [Suspect]
     Active Substance: BEVACIZUMAB
     Indication: AGE-RELATED MACULAR DEGENERATION
     Dosage: INTRAVITREAL

REACTIONS (1)
  - Drug reaction with eosinophilia and systemic symptoms [None]
